FAERS Safety Report 20861267 (Version 2)
Quarter: 2022Q2

REPORT INFORMATION
  Report Type: Spontaneous
  Country: JP (occurrence: JP)
  Receive Date: 20220523
  Receipt Date: 20220624
  Transmission Date: 20220720
  Serious: Yes (Hospitalization)
  Sender: FDA-Public Use
  Company Number: JP-OTSUKA-2022_027877

PATIENT
  Age: 7 Decade
  Sex: Female

DRUGS (5)
  1. REXULTI [Suspect]
     Active Substance: BREXPIPRAZOLE
     Indication: Schizophrenia
     Dosage: UNK
     Route: 065
  2. ZOTEPINE [Concomitant]
     Active Substance: ZOTEPINE
     Indication: Extrapyramidal disorder
     Dosage: UNK
     Route: 065
  3. ZOTEPINE [Concomitant]
     Active Substance: ZOTEPINE
     Indication: Extrapyramidal disorder
  4. VALPROATE SODIUM [Concomitant]
     Active Substance: VALPROATE SODIUM
     Indication: Extrapyramidal disorder
     Dosage: UNK
     Route: 065
  5. VALPROATE SODIUM [Concomitant]
     Active Substance: VALPROATE SODIUM
     Indication: Extrapyramidal disorder

REACTIONS (1)
  - Psychiatric decompensation [Unknown]
